FAERS Safety Report 5833891-8 (Version None)
Quarter: 2008Q3

REPORT INFORMATION
  Report Type: 
  Country: None (occurrence: None)
  Receive Date: 20080805
  Receipt Date: 20080731
  Transmission Date: 20090109
  Serious: Yes (Hospitalization)
  Sender: FDA-Public Use
  Company Number: A0740516A

PATIENT
  Age: 35 Year
  Sex: Female

DRUGS (1)
  1. ARIXTRA [Suspect]
     Indication: DEEP VEIN THROMBOSIS
     Route: 058
     Dates: start: 20080725

REACTIONS (5)
  - COAGULATION TIME SHORTENED [None]
  - HEADACHE [None]
  - HEART RATE IRREGULAR [None]
  - NO THERAPEUTIC RESPONSE [None]
  - VOMITING [None]
